FAERS Safety Report 21052111 (Version 1)
Quarter: 2022Q3

REPORT INFORMATION
  Report Type: Spontaneous
  Country: US (occurrence: None)
  Receive Date: 20220706
  Receipt Date: 20220706
  Transmission Date: 20221027
  Serious: No
  Sender: FDA-Public Use
  Company Number: None

PATIENT
  Sex: Female

DRUGS (2)
  1. OPSUMIT [Suspect]
     Active Substance: MACITENTAN
     Indication: Pulmonary arterial hypertension
     Dosage: FREQUENCY : DAILY;?
     Route: 048
     Dates: start: 202006
  2. UPTRAVI [Suspect]
     Active Substance: SELEXIPAG

REACTIONS (4)
  - Bone pain [None]
  - Swelling [None]
  - Insurance issue [None]
  - Therapy interrupted [None]
